FAERS Safety Report 20571877 (Version 1)
Quarter: 2022Q1

REPORT INFORMATION
  Report Type: Report from Study
  Country: GB (occurrence: GB)
  Receive Date: 20220309
  Receipt Date: 20220309
  Transmission Date: 20220423
  Serious: Yes (Other)
  Sender: FDA-Public Use
  Company Number: GB-NOVARTISPH-NVSC2022GB049666

PATIENT
  Sex: Male

DRUGS (1)
  1. LUTATHERA [Suspect]
     Active Substance: LUTETIUM OXODOTREOTIDE LU-177
     Indication: Insulinoma
     Dosage: 7.4 GBQ
     Route: 042
     Dates: start: 201905

REACTIONS (7)
  - Metastasis [Unknown]
  - Insulinoma [Unknown]
  - Hypoglycaemia [Unknown]
  - Malignant neoplasm progression [Unknown]
  - Metastases to liver [Unknown]
  - Jaundice [Unknown]
  - Intentional product use issue [Recovering/Resolving]

NARRATIVE: CASE EVENT DATE: 20190101
